FAERS Safety Report 8369795-9 (Version None)
Quarter: 2012Q1

REPORT INFORMATION
  Report Type: 
  Country: None (occurrence: None)
  Receive Date: 20120323
  Receipt Date: 20110801
  Transmission Date: 20120608
  Serious: Yes (Hospitalization)
  Sender: FDA-Public Use
  Company Number: 163-21880-11080309

PATIENT
  Age: 60 Year
  Sex: Male

DRUGS (7)
  1. MULTI-VITAMINS [Concomitant]
  2. ACETAMINOPHEN [Concomitant]
  3. GABAPENTIN [Concomitant]
  4. OXYCODONE HCL [Concomitant]
  5. REVLIMID [Suspect]
     Indication: MULTIPLE MYELOMA
     Dosage: 25 MG, DAILY FOR 21 DAYS, PO
     Route: 048
     Dates: start: 20100723
  6. DEXAMETHASONE [Concomitant]
  7. CARVEDILOL [Concomitant]

REACTIONS (1)
  - PNEUMONIA [None]
